FAERS Safety Report 22159053 (Version 1)
Quarter: 2023Q1

REPORT INFORMATION
  Report Type: Spontaneous
  Country: US (occurrence: None)
  Receive Date: 20230331
  Receipt Date: 20230331
  Transmission Date: 20230418
  Serious: Yes (Hospitalization, Other)
  Sender: FDA-Public Use
  Company Number: US-Hikma Pharmaceuticals USA Inc.-US-H14001-23-00891

PATIENT
  Age: 47 Year
  Sex: Male
  Weight: 107.5 kg

DRUGS (11)
  1. DOXORUBICIN [Suspect]
     Active Substance: DOXORUBICIN
     Indication: Leiomyosarcoma
     Route: 042
     Dates: start: 20230117
  2. DOXORUBICIN [Suspect]
     Active Substance: DOXORUBICIN
     Route: 042
     Dates: end: 20230207
  3. INVESTIGATIONAL PRODUCT [Suspect]
     Active Substance: INVESTIGATIONAL PRODUCT
     Indication: Leiomyosarcoma
     Route: 042
     Dates: start: 20230117, end: 20230124
  4. INVESTIGATIONAL PRODUCT [Suspect]
     Active Substance: INVESTIGATIONAL PRODUCT
     Route: 042
     Dates: end: 20230214
  5. TADALAFIL [Concomitant]
     Active Substance: TADALAFIL
     Indication: Erectile dysfunction
     Dosage: UNKNOWN
     Route: 048
     Dates: start: 20221221
  6. METFORMIN HYDROCHLORIDE [Concomitant]
     Active Substance: METFORMIN HYDROCHLORIDE
     Indication: Hyperglycaemia
     Dosage: UNKNOWN
     Route: 048
     Dates: start: 20220316
  7. ATORVASTATIN [Concomitant]
     Active Substance: ATORVASTATIN
     Indication: Hyperlipidaemia
     Dosage: UNKNOWN
     Route: 048
     Dates: start: 20191101
  8. LOSARTAN [Concomitant]
     Active Substance: LOSARTAN
     Indication: Hypertension
     Dosage: UNKNOWN
     Route: 048
     Dates: start: 20210101
  9. LOVENOX [Concomitant]
     Active Substance: ENOXAPARIN SODIUM
     Indication: Deep vein thrombosis
     Dosage: UNKNOWN
     Route: 058
     Dates: start: 20221230
  10. ACETAMINOPHEN [Concomitant]
     Active Substance: ACETAMINOPHEN
     Indication: Pain
     Dosage: UNKNOWN
     Route: 048
     Dates: start: 20230117
  11. PANTOPRAZOLE [Concomitant]
     Active Substance: PANTOPRAZOLE
     Indication: Chest discomfort
     Dosage: UNKNOWN
     Route: 048
     Dates: start: 20230118

REACTIONS (13)
  - Chest discomfort [Recovered/Resolved]
  - Pain in extremity [Unknown]
  - Cardiac hypertrophy [Unknown]
  - Myocardial fibrosis [Unknown]
  - Troponin increased [Unknown]
  - Troponin I increased [Unknown]
  - Brain natriuretic peptide increased [Unknown]
  - Platelet count decreased [Unknown]
  - Haemoglobin decreased [Unknown]
  - White blood cell count decreased [Unknown]
  - Cardiotoxicity [Recovered/Resolved]
  - Thrombocytopenia [Unknown]
  - Neutropenia [Unknown]

NARRATIVE: CASE EVENT DATE: 20230214
